FAERS Safety Report 10695336 (Version 1)
Quarter: 2015Q1

REPORT INFORMATION
  Report Type: Report from Study
  Country: CA (occurrence: CA)
  Receive Date: 20150107
  Receipt Date: 20150107
  Transmission Date: 20150721
  Serious: Yes (Other)
  Sender: FDA-Public Use
  Company Number: CA-JNJFOC-20141219609

PATIENT
  Age: 55 Year
  Sex: Male
  Weight: 92 kg

DRUGS (6)
  1. REMICADE [Suspect]
     Active Substance: INFLIXIMAB
     Indication: COLITIS ULCERATIVE
     Route: 042
  2. MORPHINE [Concomitant]
     Active Substance: MORPHINE
     Route: 065
  3. PARIET [Concomitant]
     Active Substance: RABEPRAZOLE SODIUM
     Route: 065
  4. CELEXA [Concomitant]
     Active Substance: CITALOPRAM HYDROBROMIDE
     Route: 065
  5. CLONAZEPAM. [Concomitant]
     Active Substance: CLONAZEPAM
     Route: 065
  6. GABAPENTIN. [Concomitant]
     Active Substance: GABAPENTIN
     Route: 065

REACTIONS (2)
  - Headache [Recovered/Resolved]
  - Lower respiratory tract infection [Recovered/Resolved]

NARRATIVE: CASE EVENT DATE: 201412
